FAERS Safety Report 5490215-6 (Version None)
Quarter: 2007Q4

REPORT INFORMATION
  Report Type: 
  Country: None (occurrence: None)
  Receive Date: 20071018
  Receipt Date: 20071015
  Transmission Date: 20080405
  Serious: Yes (Hospitalization, Other)
  Sender: FDA-Public Use
  Company Number: US-MERCK-0606USA05644

PATIENT
  Age: 74 Year
  Sex: Female

DRUGS (18)
  1. FOSAMAX [Suspect]
     Indication: OSTEOPOROSIS
     Route: 048
     Dates: start: 19970701, end: 20010101
  2. FOSAMAX [Suspect]
     Route: 048
     Dates: start: 20010107, end: 20050101
  3. ZOLOFT [Concomitant]
     Route: 065
  4. LIPITOR [Concomitant]
     Route: 065
  5. ZANTAC [Concomitant]
     Route: 065
  6. CLARITIN [Concomitant]
     Route: 065
  7. NASACORT [Concomitant]
     Route: 065
  8. SYNTHROID [Concomitant]
     Route: 065
  9. PREMARIN [Concomitant]
     Route: 065
  10. PROGESTERONE [Concomitant]
     Route: 065
  11. VITAMINS (UNSPECIFIED) [Concomitant]
     Route: 065
  12. ASCORBIC ACID [Concomitant]
     Route: 065
  13. VITAMIN E [Concomitant]
     Route: 065
  14. CALCIUM (UNSPECIFIED) AND VITAMIN D (UNSPECIFIED) [Concomitant]
     Route: 065
  15. CELEBREX [Concomitant]
     Route: 065
  16. UNIVASC [Concomitant]
     Route: 065
  17. ASPIRIN [Concomitant]
     Route: 065
  18. LIBRIUM [Concomitant]
     Route: 065

REACTIONS (39)
  - ALCOHOLISM [None]
  - BALANCE DISORDER [None]
  - BONE DENSITY DECREASED [None]
  - BURSITIS [None]
  - CARDIAC FLUTTER [None]
  - CEREBRAL ATROPHY [None]
  - CEREBRAL ISCHAEMIA [None]
  - CONTUSION [None]
  - DIARRHOEA [None]
  - DIZZINESS [None]
  - EMBOLISM [None]
  - FALL [None]
  - HAEMORRHAGE [None]
  - HEPATIC STEATOSIS [None]
  - HEPATOMEGALY [None]
  - HOT FLUSH [None]
  - HYPERTENSION [None]
  - LACUNAR INFARCTION [None]
  - LENS DISORDER [None]
  - LUNG DISORDER [None]
  - MACROCYTOSIS [None]
  - MACULAR OEDEMA [None]
  - MASS [None]
  - MEMORY IMPAIRMENT [None]
  - OSTEOARTHRITIS [None]
  - OSTEOMYELITIS [None]
  - OSTEONECROSIS [None]
  - RENAL CYST [None]
  - RETINAL VEIN OCCLUSION [None]
  - RHINORRHOEA [None]
  - ROTATOR CUFF SYNDROME [None]
  - SINUSITIS [None]
  - SPINAL OSTEOARTHRITIS [None]
  - TENDONITIS [None]
  - THYROID DISORDER [None]
  - TINNITUS [None]
  - URINARY TRACT INFECTION [None]
  - VITREOUS DETACHMENT [None]
  - WEIGHT DECREASED [None]
